FAERS Safety Report 9546921 (Version 2)
Quarter: 2013Q3

REPORT INFORMATION
  Report Type: Spontaneous
  Country: US (occurrence: None)
  Receive Date: 20130606
  Receipt Date: 20130906
  Transmission Date: 20140515
  Serious: Yes (Other)
  Sender: FDA-Public Use
  Company Number: 163-POMAL-13042614

PATIENT
  Age: 76 Year
  Sex: Male
  Weight: 78.02 kg

DRUGS (32)
  1. POMALYST [Suspect]
     Indication: PLASMA CELL MYELOMA
     Dosage: 3 MG, 21 IN 28 D, PO
     Route: 048
     Dates: start: 20130415
  2. ACICLOVIR (ACICLOVIR) [Concomitant]
  3. GABAPENTIN (GABAPENTIN) [Concomitant]
  4. HYDROCODONE/APAP(VICODIN) [Concomitant]
  5. FENTANYL (FENTANYL) [Concomitant]
  6. ISOSORBIDE (ISOSORBIDE) [Concomitant]
  7. METOPOLOL (METOPROLOL) [Concomitant]
  8. POTASSIUM CHLORIDE (POTASSIUM CHLORIDE) [Concomitant]
  9. DIGOXIN (DIGOXIN) [Concomitant]
  10. HYDRALAZINE (HYDRALAZINE) [Concomitant]
  11. FUROSEMIDE (FUROSEMIDE) [Concomitant]
  12. URSODIOL (URSODEOXYCHOLIC ACID) [Concomitant]
  13. DABIGATRAN (DIBIGATRAN) [Concomitant]
  14. SULFAMETHOXAZOLE /TRIMETHOPRIM (BACTRIM) [Concomitant]
  15. DEXAMETAHSONE (DEXAMETHASONE) [Concomitant]
  16. FINASTERIDE (FINASTERIDE) [Concomitant]
  17. TAMSULOSIN (TAMUSULOSIN) [Concomitant]
  18. OMEPRAZOLE (OMEPRAZOLE) [Concomitant]
  19. LEVOTHYROXINE (LEVOTHYROXINE SODIUM) [Concomitant]
  20. PAMIDRONATE (PAMIDRONATE DISODIUM) [Concomitant]
  21. B COMPLEX (BECOSYM FORTE) [Concomitant]
  22. COQ-10 (UBIDECARENONE) [Concomitant]
  23. LASIX (FUROSEMIDE) [Concomitant]
  24. FLOMAX (TAMSULOSIN HYDROCHLORIDE) [Concomitant]
  25. VITAMIN C (ASCORBIC ACID) [Concomitant]
  26. VICOPROFEN (VICOPROFEN) [Concomitant]
  27. SYNTHROID (LEVITHYROXINE SODIUM) [Concomitant]
  28. SENNA (SENNA) [Concomitant]
  29. KLOR-CON (POTASSIUM CHLORIDE) [Concomitant]
  30. PROBIATA (LACTOBACILLUS ACIDOPHILUS) [Concomitant]
  31. PRADAXA (DABIGATRAN ETEXILATE MESILATE) [Concomitant]
  32. LISINOPRIL (LISINOPRIL) [Concomitant]

REACTIONS (3)
  - Heart rate decreased [None]
  - Atrial fibrillation [None]
  - Cardiac failure congestive [None]
